FAERS Safety Report 6027155-X (Version None)
Quarter: 2008Q4

REPORT INFORMATION
  Report Type: 
  Country: None (occurrence: None)
  Receive Date: 20081231
  Receipt Date: 20081231
  Transmission Date: 20090506
  Serious: Yes (Other)
  Sender: FDA-Public Use
  Company Number: None

PATIENT
  Sex: Male
  Weight: 70.3075 kg

DRUGS (1)
  1. FINASTERIDE [Suspect]
     Indication: HAEMORRHAGE
     Dosage: 5 MG ONE PER DAY PO
     Route: 048
     Dates: start: 20081216, end: 20081218

REACTIONS (2)
  - ANXIETY [None]
  - PANIC ATTACK [None]
